FAERS Safety Report 9529432 (Version 2)
Quarter: 2013Q3

REPORT INFORMATION
  Report Type: Spontaneous
  Country: JP (occurrence: JP)
  Receive Date: 20130917
  Receipt Date: 20130917
  Transmission Date: 20140515
  Serious: Yes (Other)
  Sender: FDA-Public Use
  Company Number: JP-PFIZER INC-2013266773

PATIENT
  Sex: Male

DRUGS (1)
  1. AMLODIN [Suspect]
     Indication: HYPERTENSION
     Dosage: 2.5 MG, 1X/DAY
     Dates: start: 20130809

REACTIONS (3)
  - Haemorrhage subcutaneous [Recovered/Resolved]
  - Haemorrhage subcutaneous [Unknown]
  - Vasodilatation [Unknown]
